FAERS Safety Report 22103233 (Version 2)
Quarter: 2023Q2

REPORT INFORMATION
  Report Type: Spontaneous
  Country: US (occurrence: US)
  Receive Date: 20230316
  Receipt Date: 20230410
  Transmission Date: 20230721
  Serious: Yes (Other)
  Sender: FDA-Public Use
  Company Number: US-PFIZER INC-PV202300047980

PATIENT
  Age: 41 Year
  Sex: Female

DRUGS (1)
  1. RUXIENCE [Suspect]
     Active Substance: RITUXIMAB-PVVR
     Dosage: WEEK 0, 2 REPEAT Q 6 MONTH
     Route: 042

REACTIONS (23)
  - Seizure [Unknown]
  - Meniscus injury [Unknown]
  - Partial seizures [Unknown]
  - Eye inflammation [Unknown]
  - Claudication of jaw muscles [Unknown]
  - Anxiety [Unknown]
  - Joint swelling [Unknown]
  - Joint stiffness [Unknown]
  - Dyspnoea [Unknown]
  - Diffuse alopecia [Unknown]
  - Skin discolouration [Unknown]
  - Fatigue [Unknown]
  - Pyrexia [Unknown]
  - Night sweats [Unknown]
  - Headache [Unknown]
  - Fibromyalgia [Unknown]
  - Increased tendency to bruise [Unknown]
  - Sinusitis [Unknown]
  - Asthma [Unknown]
  - Condition aggravated [Unknown]
  - Arthralgia [Recovering/Resolving]
  - Pain in extremity [Recovering/Resolving]
  - Rash [Unknown]

NARRATIVE: CASE EVENT DATE: 20230301
